FAERS Safety Report 8241149-5 (Version None)
Quarter: 2012Q1

REPORT INFORMATION
  Report Type: 
  Country: None (occurrence: None)
  Receive Date: 20120314
  Receipt Date: 20120125
  Transmission Date: 20120608
  Serious: No
  Sender: FDA-Public Use
  Company Number: E7389-02002-SPO-US

PATIENT
  Sex: Female

DRUGS (2)
  1. HALAVEN [Suspect]
     Indication: BREAST CANCER
     Dosage: INTRAVENOUS INFUSION
     Route: 042
  2. FOLIC ACID [Concomitant]

REACTIONS (3)
  - CONSTIPATION [None]
  - FATIGUE [None]
  - PARAESTHESIA [None]
